FAERS Safety Report 13711198 (Version 1)
Quarter: 2017Q3

REPORT INFORMATION
  Report Type: Spontaneous
  Country: US (occurrence: US)
  Receive Date: 20170703
  Receipt Date: 20170703
  Transmission Date: 20171127
  Serious: Yes (Hospitalization)
  Sender: FDA-Public Use
  Company Number: US-ASTELLAS-2017US025502

PATIENT
  Sex: Male

DRUGS (1)
  1. XTANDI [Suspect]
     Active Substance: ENZALUTAMIDE
     Indication: PROSTATE CANCER
     Route: 065
     Dates: start: 20170326, end: 20170526

REACTIONS (5)
  - Asthenia [Unknown]
  - Gait disturbance [Unknown]
  - Decreased appetite [Unknown]
  - Dizziness [Unknown]
  - Headache [Unknown]
